FAERS Safety Report 5215668-X (Version None)
Quarter: 2007Q1

REPORT INFORMATION
  Report Type: 
  Country: None (occurrence: None)
  Receive Date: 20070117
  Receipt Date: 20070109
  Transmission Date: 20070707
  Serious: Yes (Death)
  Sender: FDA-Public Use
  Company Number: 2007AL000151

PATIENT
  Age: 28 Year
  Sex: Female

DRUGS (8)
  1. CITALOPRAM HYDROBROMIDE [Suspect]
     Indication: DEPRESSION
     Dosage: 30 MG; QD; PO
     Route: 048
  2. LITHIUM CARBONATE [Concomitant]
  3. CLOZAPINE [Concomitant]
  4. HALOPERIDOL [Concomitant]
  5. DIAZEPAM [Concomitant]
  6. PIRENZEPINE [Concomitant]
  7. LACTULOSE [Concomitant]
  8. SENNA [Concomitant]

REACTIONS (5)
  - CYANOSIS [None]
  - MYOCARDIAL INFARCTION [None]
  - NEUTROPHIL COUNT INCREASED [None]
  - VENTRICULAR HYPERTROPHY [None]
  - WHITE BLOOD CELL COUNT INCREASED [None]
